FAERS Safety Report 17804235 (Version 2)
Quarter: 2020Q2

REPORT INFORMATION
  Report Type: Report from Study
  Country: US (occurrence: US)
  Receive Date: 20200519
  Receipt Date: 20200616
  Transmission Date: 20200714
  Serious: Yes (Hospitalization)
  Sender: FDA-Public Use
  Company Number: US-PFIZER INC-2020152279

PATIENT
  Age: 60 Year
  Sex: Female
  Weight: 61.8 kg

DRUGS (11)
  1. LOMOTIL [LOPERAMIDE HYDROCHLORIDE] [Concomitant]
     Indication: DIARRHOEA
     Dosage: 2.5-0.025 MG, AS NEEDED (4 TIMES A DAY)
     Route: 048
     Dates: start: 20170615
  2. SINGULAIR [Concomitant]
     Active Substance: MONTELUKAST SODIUM
     Indication: ASTHMA
     Dosage: 10 MG, AS NEEDED
     Route: 048
     Dates: start: 20150511
  3. INLYTA [Suspect]
     Active Substance: AXITINIB
     Indication: RENAL CELL CARCINOMA
     Dosage: 10 MG, 2X/DAY CONTINUOUS
     Route: 048
     Dates: start: 20161031, end: 20200410
  4. SYNTHROID [Concomitant]
     Active Substance: LEVOTHYROXINE SODIUM
     Indication: HYPOTHYROIDISM
     Dosage: 112 UG, 1X/DAY
     Route: 048
     Dates: start: 20170317
  5. ATIVAN [Concomitant]
     Active Substance: LORAZEPAM
     Indication: ANXIETY
     Dosage: 1 MG, 4X/DAY
     Route: 048
     Dates: start: 20160126
  6. CODEINE [Concomitant]
     Active Substance: CODEINE
     Indication: DIARRHOEA
     Dosage: 15 MG, AS NEEDED (EVERY 6 HOURS)
     Route: 048
     Dates: start: 20171031
  7. HYDRODIURIL [Concomitant]
     Active Substance: HYDROCHLOROTHIAZIDE
     Indication: HYPERTENSION
     Dosage: 25 MG, 1X/DAY
     Route: 048
     Dates: start: 20160526, end: 20200416
  8. NEUROTIN [GABAPENTIN] [Concomitant]
     Indication: PAIN
     Dosage: 300 MG, 2X/DAY
     Route: 048
     Dates: start: 20170110
  9. AVELUMAB [Suspect]
     Active Substance: AVELUMAB
     Indication: RENAL CELL CARCINOMA
     Dosage: 608 MG, CYCLIC (EVERY 2 WEEKS)
     Route: 042
     Dates: start: 20161031, end: 20200331
  10. ZOFRAN [Concomitant]
     Active Substance: ONDANSETRON HYDROCHLORIDE
     Indication: NAUSEA
     Dosage: 8 MG, AS NEEDED (EVERY 8 HOURS)
     Route: 048
     Dates: start: 20170124
  11. OPIUM [MORPHINE] [Concomitant]
     Active Substance: MORPHINE
     Indication: PAIN
     Dosage: 6 MG, 2X/DAY
     Route: 048
     Dates: start: 20171212

REACTIONS (2)
  - Dyspnoea [Recovered/Resolved]
  - Acute coronary syndrome [Recovered/Resolved]

NARRATIVE: CASE EVENT DATE: 20200410
